FAERS Safety Report 17590353 (Version 2)
Quarter: 2020Q1

REPORT INFORMATION
  Report Type: Report from Study
  Country: None (occurrence: US)
  Receive Date: 20200327
  Receipt Date: 20200330
  Transmission Date: 20200409
  Serious: Yes (Other)
  Sender: FDA-Public Use
  Company Number: US-ABBVIE-20K-163-3338540-00

PATIENT
  Sex: Female

DRUGS (1)
  1. MAVYRET [Suspect]
     Active Substance: GLECAPREVIR\PIBRENTASVIR
     Indication: HEPATITIS C
     Route: 048
     Dates: start: 2018, end: 2018

REACTIONS (7)
  - Bone marrow failure [Not Recovered/Not Resolved]
  - Rash [Unknown]
  - Lichen planus [Not Recovered/Not Resolved]
  - Immune system disorder [Unknown]
  - Psoriasis [Not Recovered/Not Resolved]
  - Skin warm [Unknown]
  - Bone pain [Not Recovered/Not Resolved]

NARRATIVE: CASE EVENT DATE: 2018
